FAERS Safety Report 14375877 (Version 2)
Quarter: 2020Q2

REPORT INFORMATION
  Report Type: Spontaneous
  Country: FR (occurrence: FR)
  Receive Date: 20180111
  Receipt Date: 20200507
  Transmission Date: 20200713
  Serious: Yes (Hospitalization)
  Sender: FDA-Public Use
  Company Number: FR-009507513-1801FRA002738

PATIENT
  Age: 83 Year
  Sex: Female

DRUGS (8)
  1. MIRTAZAPINE. [Suspect]
     Active Substance: MIRTAZAPINE
     Dosage: 3 TABLETS/DAY
     Route: 048
     Dates: start: 20160423
  2. LAMICTAL [Suspect]
     Active Substance: LAMOTRIGINE
     Dosage: 2 TABLETS/DAY
     Route: 048
     Dates: start: 20160511, end: 20160610
  3. CYAMEMAZINE [Concomitant]
     Active Substance: CYAMEMAZINE
     Dosage: UNK
     Dates: start: 20160512, end: 20160525
  4. LAMICTAL [Suspect]
     Active Substance: LAMOTRIGINE
     Indication: DEPRESSION
     Dosage: 1 TABLET/DAY
     Route: 048
     Dates: start: 20160504, end: 20160510
  5. ALPRAZOLAM. [Concomitant]
     Active Substance: ALPRAZOLAM
     Dosage: UNK
  6. MIRTAZAPINE. [Suspect]
     Active Substance: MIRTAZAPINE
     Indication: DEPRESSION
     Dosage: 1 TABLET/DAY
     Route: 048
     Dates: start: 20160418, end: 20160419
  7. CIPROFLOXACIN. [Concomitant]
     Active Substance: CIPROFLOXACIN
     Indication: URINARY TRACT INFECTION
     Dosage: 250 MILLIGRAM, 2/DAY
     Dates: start: 20160606, end: 20160613
  8. MIRTAZAPINE. [Suspect]
     Active Substance: MIRTAZAPINE
     Dosage: 2 TABLETS/DAY
     Route: 048
     Dates: start: 20160420, end: 20160422

REACTIONS (1)
  - Drug reaction with eosinophilia and systemic symptoms [Recovered/Resolved]

NARRATIVE: CASE EVENT DATE: 20160607
